FAERS Safety Report 25684440 (Version 1)
Quarter: 2025Q3

REPORT INFORMATION
  Report Type: Report from Study
  Country: US (occurrence: US)
  Receive Date: 20250815
  Receipt Date: 20250815
  Transmission Date: 20251020
  Serious: Yes (Death, Hospitalization, Other)
  Sender: SUNOVION
  Company Number: US-SUMITOMO PHARMA SWITZERLAND GMBH-2024SPA001057

PATIENT
  Age: 79 Year
  Sex: Male

DRUGS (9)
  1. ORGOVYX [Suspect]
     Active Substance: RELUGOLIX
     Indication: Prostate cancer
     Dosage: 120 MG, QD
     Route: 048
     Dates: start: 20240622
  2. ERLEADA [Concomitant]
     Active Substance: APALUTAMIDE
  3. ATORVASTATIN CALCIUM [Concomitant]
     Active Substance: ATORVASTATIN CALCIUM
  4. BENAZEPRIL HYDROCHLORIDE [Concomitant]
     Active Substance: BENAZEPRIL HYDROCHLORIDE
  5. CALCIUM CARBONATE\CHOLECALCIFEROL [Concomitant]
     Active Substance: CALCIUM CARBONATE\CHOLECALCIFEROL
  6. METOPROLOL SUCCINATE [Concomitant]
     Active Substance: METOPROLOL SUCCINATE
  7. PROCHLORPERAZINE MALEATE [Concomitant]
     Active Substance: PROCHLORPERAZINE MALEATE
  8. SAVAYSA [Concomitant]
     Active Substance: EDOXABAN TOSYLATE
  9. CAPECITABINE [Concomitant]
     Active Substance: CAPECITABINE

REACTIONS (8)
  - Death [Fatal]
  - Dehydration [Unknown]
  - Diarrhoea [Unknown]
  - Escherichia infection [Unknown]
  - Infection [Unknown]
  - Blood potassium increased [Unknown]
  - Hot flush [Unknown]
  - Incorrect dose administered [Unknown]
